FAERS Safety Report 21739040 (Version 1)
Quarter: 2022Q4

REPORT INFORMATION
  Report Type: Spontaneous
  Country: BE (occurrence: BE)
  Receive Date: 20221216
  Receipt Date: 20221216
  Transmission Date: 20230112
  Serious: Yes (Life-Threatening, Hospitalization, Other)
  Sender: FDA-Public Use
  Company Number: None

PATIENT
  Age: 62 Year
  Sex: Male
  Weight: 60 kg

DRUGS (9)
  1. SIMVASTATIN [Suspect]
     Active Substance: SIMVASTATIN
     Dosage: 1 IN THE EVENING 1DF, QD
  2. IRBESARTAN [Suspect]
     Active Substance: IRBESARTAN
     Dosage: IN THE MORNING 0.5DF,QD
  3. VALPROATE SODIUM [Interacting]
     Active Substance: VALPROATE SODIUM
     Indication: Seizure
     Dosage: 1 IN THE MORNING, 1 IN THE EVENING 2DF, BID
     Route: 048
     Dates: end: 20210526
  4. ASPIRIN [Interacting]
     Active Substance: ASPIRIN
     Dosage: 1DF, QD
  5. VARENICLINE TARTRATE [Suspect]
     Active Substance: VARENICLINE TARTRATE
     Indication: Ex-tobacco user
     Dosage: UNK
     Route: 048
     Dates: start: 202006, end: 202105
  6. GINKGO [Concomitant]
     Active Substance: GINKGO
     Dosage: 1 IN THE MORNING 1DF,QD
     Dates: end: 202102
  7. ALENDRONATE EG [Concomitant]
     Dosage: EVERY MONDAY 1DF,QW
  8. DURATEARS [WOOL FAT] [Concomitant]
     Dosage: 2X/DAY 2DF,BID
  9. STEOVIT FORTE [Concomitant]
     Dosage: 1 IN THE EVENING 1DF,QD

REACTIONS (3)
  - Autoimmune pancytopenia [Recovered/Resolved]
  - Vasculitis [Recovered/Resolved]
  - Drug interaction [Recovered/Resolved]
